FAERS Safety Report 22129777 (Version 2)
Quarter: 2023Q1

REPORT INFORMATION
  Report Type: Spontaneous
  Country: US (occurrence: US)
  Receive Date: 20230323
  Receipt Date: 20230327
  Transmission Date: 20230418
  Serious: No
  Sender: FDA-Public Use
  Company Number: US-GLAXOSMITHKLINE-US2023AMR041371

PATIENT
  Sex: Female
  Weight: 51.7 kg

DRUGS (1)
  1. ZEJULA [Suspect]
     Active Substance: NIRAPARIB
     Indication: Ovarian cancer
     Dosage: 200 MG, QD
     Route: 048
     Dates: start: 20230307, end: 20230318

REACTIONS (12)
  - Chest pain [Unknown]
  - Sleep disorder [Unknown]
  - Vision blurred [Unknown]
  - Condition aggravated [Unknown]
  - Back pain [Unknown]
  - Abdominal pain upper [Unknown]
  - Nausea [Unknown]
  - Adverse drug reaction [Unknown]
  - Illness [Unknown]
  - Dyspnoea [Unknown]
  - Palpitations [Unknown]
  - Abdominal pain upper [Unknown]
